FAERS Safety Report 10762318 (Version 2)
Quarter: 2015Q2

REPORT INFORMATION
  Report Type: Spontaneous
  Country: US (occurrence: US)
  Receive Date: 20150204
  Receipt Date: 20150401
  Transmission Date: 20150821
  Serious: No
  Sender: FDA-Public Use
  Company Number: US-009507513-1502USA000902

PATIENT
  Sex: Male

DRUGS (3)
  1. ASMANEX [Suspect]
     Active Substance: MOMETASONE FUROATE
     Indication: CHRONIC OBSTRUCTIVE PULMONARY DISEASE
     Dosage: 1 PUFF AT BEDTIME
     Route: 055
     Dates: start: 2014
  2. ASMANEX [Suspect]
     Active Substance: MOMETASONE FUROATE
     Dosage: 1 PUFF AT BEDTIME
     Route: 055
  3. ASMANEX [Suspect]
     Active Substance: MOMETASONE FUROATE
     Dosage: 1 PUFF AT BEDTIME
     Route: 055

REACTIONS (5)
  - Disorientation [Unknown]
  - Confusional state [Unknown]
  - Drug administration error [Unknown]
  - Cardiac disorder [Unknown]
  - Product container issue [Unknown]

NARRATIVE: CASE EVENT DATE: 2014
